FAERS Safety Report 19455026 (Version 3)
Quarter: 2021Q4

REPORT INFORMATION
  Report Type: Report from Study
  Country: MX (occurrence: MX)
  Receive Date: 20210623
  Receipt Date: 20211203
  Transmission Date: 20220303
  Serious: Yes (Other)
  Sender: FDA-Public Use
  Company Number: MX-NOVARTISPH-PHHY2019MX040434

PATIENT
  Sex: Female
  Weight: 70 kg

DRUGS (5)
  1. ENTRESTO [Interacting]
     Active Substance: SACUBITRIL\VALSARTAN
     Indication: Infarction
     Dosage: 1 DOSAGE FORM, Q12H
     Route: 048
     Dates: start: 2016
  2. ENTRESTO [Interacting]
     Active Substance: SACUBITRIL\VALSARTAN
     Dosage: 1 DOSAGE FORM, BID
     Route: 048
     Dates: start: 201801
  3. DIOVAN [Interacting]
     Active Substance: VALSARTAN
     Indication: Infarction
     Dosage: 1 DOSAGE FORM, BID
     Route: 048
     Dates: start: 2018
  4. ATORVASTATIN [Interacting]
     Active Substance: ATORVASTATIN
     Indication: Infarction
     Dosage: 1 DOSAGE FORM, QD
     Route: 048
     Dates: start: 2018
  5. OMEPRAZOLE [Concomitant]
     Active Substance: OMEPRAZOLE
     Indication: Adverse event
     Dosage: 1 DOSAGE FORM, QD
     Route: 048
     Dates: start: 2018

REACTIONS (7)
  - Arterial occlusive disease [Unknown]
  - Infarction [Unknown]
  - Dyspnoea [Unknown]
  - Weight decreased [Unknown]
  - Gait disturbance [Unknown]
  - Fatigue [Unknown]
  - Product use in unapproved indication [Unknown]

NARRATIVE: CASE EVENT DATE: 20180101
